FAERS Safety Report 8069776-9 (Version None)
Quarter: 2012Q1

REPORT INFORMATION
  Report Type: 
  Country: None (occurrence: None)
  Receive Date: 20120125
  Receipt Date: 20120119
  Transmission Date: 20120608
  Serious: Yes (Other)
  Sender: FDA-Public Use
  Company Number: GR-PFIZER INC-2012016115

PATIENT
  Sex: Male

DRUGS (1)
  1. LYRICA [Suspect]
     Indication: NECK PAIN
     Dosage: 75 MG
     Dates: start: 20120101

REACTIONS (4)
  - HEART RATE INCREASED [None]
  - PELVIC PAIN [None]
  - PAIN IN EXTREMITY [None]
  - PAIN [None]
